FAERS Safety Report 23699860 (Version 1)
Quarter: 2024Q2

REPORT INFORMATION
  Report Type: Report from Study
  Country: US (occurrence: US)
  Receive Date: 20240403
  Receipt Date: 20240403
  Transmission Date: 20240715
  Serious: Yes (Hospitalization, Other)
  Sender: FDA-Public Use
  Company Number: US-ABBVIE-5701357

PATIENT
  Age: 76 Year
  Sex: Female

DRUGS (1)
  1. HUMIRA [Suspect]
     Active Substance: ADALIMUMAB
     Indication: Product used for unknown indication
     Dosage: CF/FORM STRENGTH: 40 MG
     Route: 058

REACTIONS (6)
  - Illness [Recovering/Resolving]
  - Cataract [Unknown]
  - Anosmia [Unknown]
  - Deafness [Unknown]
  - Bronchitis [Unknown]
  - Ageusia [Unknown]

NARRATIVE: CASE EVENT DATE: 20240201
